FAERS Safety Report 15637435 (Version 1)
Quarter: 2018Q4

REPORT INFORMATION
  Report Type: Spontaneous
  Country: US (occurrence: US)
  Receive Date: 20181120
  Receipt Date: 20181120
  Transmission Date: 20190205
  Serious: No
  Sender: FDA-Public Use
  Company Number: US-JNJFOC-20180530095

PATIENT
  Age: 61 Year
  Sex: Female

DRUGS (20)
  1. BUPROPION. [Concomitant]
     Active Substance: BUPROPION
  2. OXYCODONE [Concomitant]
     Active Substance: OXYCODONE
  3. BACTRIM [Concomitant]
     Active Substance: SULFAMETHOXAZOLE\TRIMETHOPRIM
  4. TACROLIMUS. [Concomitant]
     Active Substance: TACROLIMUS
  5. ACYCLOVIR. [Concomitant]
     Active Substance: ACYCLOVIR
  6. CYANOCOBALAMIN. [Concomitant]
     Active Substance: CYANOCOBALAMIN
  7. METHYLPREDNISOLONE. [Concomitant]
     Active Substance: METHYLPREDNISOLONE
  8. PANTOPRAZOLE [Concomitant]
     Active Substance: PANTOPRAZOLE
  9. VITAMINE B1 [Concomitant]
     Active Substance: THIAMINE HYDROCHLORIDE
  10. VORICONAZOLE. [Concomitant]
     Active Substance: VORICONAZOLE
  11. IMBRUVICA [Suspect]
     Active Substance: IBRUTINIB
     Indication: GRAFT VERSUS HOST DISEASE
     Route: 048
     Dates: start: 20171129, end: 201804
  12. METOPROLOL. [Concomitant]
     Active Substance: METOPROLOL
  13. CLONAZEPAM. [Concomitant]
     Active Substance: CLONAZEPAM
  14. GABAPENTIN. [Concomitant]
     Active Substance: GABAPENTIN
  15. TRIAMCINOLONE [Concomitant]
     Active Substance: TRIAMCINOLONE
  16. FENTANYL. [Concomitant]
     Active Substance: FENTANYL
  17. FOLIC ACID. [Concomitant]
     Active Substance: FOLIC ACID
  18. PENICILLINE [Concomitant]
     Active Substance: PENICILLIN
  19. VITAMIN B2 [Concomitant]
     Active Substance: RIBOFLAVIN
  20. ZOMETA [Concomitant]
     Active Substance: ZOLEDRONIC ACID

REACTIONS (2)
  - Incorrect dose administered [Unknown]
  - Off label use [Unknown]

NARRATIVE: CASE EVENT DATE: 20171129
